FAERS Safety Report 5875207-7 (Version None)
Quarter: 2008Q3

REPORT INFORMATION
  Report Type: 
  Country: None (occurrence: None)
  Receive Date: 20080909
  Receipt Date: 20080806
  Transmission Date: 20090109
  Serious: Yes (Other)
  Sender: FDA-Public Use
  Company Number: US-BAYER-200813247BCC

PATIENT
  Age: 49 Year
  Sex: Female
  Weight: 98 kg

DRUGS (13)
  1. CAMPHO-PHENIQUE ANTISEPTIC GEL [Suspect]
     Indication: ORAL HERPES
     Route: 061
     Dates: start: 20070101
  2. HUMALOG [Concomitant]
  3. VASOTEC [Concomitant]
  4. LEVOXYL [Concomitant]
  5. ZOLOFT [Concomitant]
  6. NEXIUM [Concomitant]
  7. NEURONTIN [Concomitant]
  8. PREMARIN [Concomitant]
  9. TOPROL-XL [Concomitant]
  10. BACLOFEN [Concomitant]
  11. TYLENOL (CAPLET) [Concomitant]
  12. MOTRIN [Concomitant]
  13. VALIUM [Concomitant]

REACTIONS (6)
  - CHEMICAL BURN OF SKIN [None]
  - HYPOAESTHESIA ORAL [None]
  - LIP BLISTER [None]
  - LIP PAIN [None]
  - OEDEMA MOUTH [None]
  - ORAL PAIN [None]
